FAERS Safety Report 16482305 (Version 1)
Quarter: 2019Q2

REPORT INFORMATION
  Report Type: Spontaneous
  Country: JP (occurrence: JP)
  Receive Date: 20190627
  Receipt Date: 20190627
  Transmission Date: 20190711
  Serious: Yes (Hospitalization, Other)
  Sender: FDA-Public Use
  Company Number: JP-ACCORD-134803

PATIENT
  Age: 79 Year
  Sex: Female
  Weight: 60.8 kg

DRUGS (4)
  1. ESOMEPRAZOLE/ESOMEPRAZOLE MAGNESIUM/ESOMEPRAZOLE SODIUM [Suspect]
     Active Substance: ESOMEPRAZOLE
     Indication: PRODUCT USED FOR UNKNOWN INDICATION
  2. LANSOPRAZOLE. [Suspect]
     Active Substance: LANSOPRAZOLE
     Indication: PRODUCT USED FOR UNKNOWN INDICATION
  3. TRICHLORMETHIAZIDE [Suspect]
     Active Substance: TRICHLORMETHIAZIDE
     Indication: CARDIAC FAILURE CHRONIC
  4. FUROSEMIDE. [Suspect]
     Active Substance: FUROSEMIDE
     Indication: DIURETIC THERAPY

REACTIONS (7)
  - Parathyroid disorder [Recovered/Resolved]
  - Hypocalcaemia [Recovered/Resolved]
  - Symptom masked [Recovered/Resolved]
  - Hypomagnesaemia [Recovered/Resolved]
  - Vitamin D deficiency [Unknown]
  - Renal hypertrophy [Unknown]
  - Electrocardiogram QT prolonged [Unknown]
